FAERS Safety Report 7509883-X (Version None)
Quarter: 2011Q2

REPORT INFORMATION
  Report Type: 
  Country: None (occurrence: None)
  Receive Date: 20110527
  Receipt Date: 20110523
  Transmission Date: 20111010
  Serious: Yes (Hospitalization)
  Sender: FDA-Public Use
  Company Number: US-BRISTOL-MYERS SQUIBB COMPANY-15769367

PATIENT
  Age: 73 Year
  Sex: Female

DRUGS (5)
  1. DIGOXIN [Concomitant]
     Indication: ATRIAL FIBRILLATION
  2. LEVOTHYROXINE SODIUM [Concomitant]
     Indication: HYPOTHYROIDISM
  3. COUMADIN [Suspect]
     Indication: ATRIAL FIBRILLATION
     Dates: start: 20110302, end: 20110305
  4. PRADAXA [Suspect]
     Indication: ATRIAL FIBRILLATION
     Dosage: INTERRUPTED ON 05MAR2011,RESTARTED ON 10MAR2011.
     Route: 048
     Dates: start: 20110227
  5. AMIODARONE HCL [Concomitant]
     Indication: ATRIAL FIBRILLATION

REACTIONS (5)
  - TOXICITY TO VARIOUS AGENTS [None]
  - HYPERHIDROSIS [None]
  - FATIGUE [None]
  - HEART RATE DECREASED [None]
  - HOT FLUSH [None]
